FAERS Safety Report 4789930-9 (Version None)
Quarter: 2005Q4

REPORT INFORMATION
  Report Type: 
  Country: None (occurrence: None)
  Receive Date: 20051006
  Receipt Date: 20050927
  Transmission Date: 20060501
  Serious: Yes (Other)
  Sender: FDA-Public Use
  Company Number: 2005UW14522

PATIENT
  Age: 44 Year
  Sex: Male

DRUGS (2)
  1. LOSEC [Suspect]
  2. TYLENOL W/ CODEINE NO. 3 [Suspect]

REACTIONS (5)
  - DISORIENTATION [None]
  - FLUSHING [None]
  - MEDICATION ERROR [None]
  - OVERDOSE [None]
  - SOMNOLENCE [None]
